FAERS Safety Report 9432841 (Version 3)
Quarter: 2013Q4

REPORT INFORMATION
  Report Type: Spontaneous
  Country: IT (occurrence: ES)
  Receive Date: 20130731
  Receipt Date: 20131007
  Transmission Date: 20140711
  Serious: Yes (Hospitalization)
  Sender: FDA-Public Use
  Company Number: ES-PFIZER INC-2013217213

PATIENT
  Age: 63 Year
  Sex: Male

DRUGS (7)
  1. ATORVASTATIN CALCIUM [Suspect]
     Dosage: 80 MG, 1X/DAY
  2. CLOPIDOGREL [Interacting]
     Indication: ANTIPLATELET THERAPY
     Dosage: 300 MG, SINGLE
  3. CLOPIDOGREL [Interacting]
     Dosage: 75 MG, 1X/DAY
  4. ACETYLSALICYLIC ACID [Concomitant]
     Indication: ANTIPLATELET THERAPY
     Dosage: 100 MG, 1X/DAY
  5. LISINOPRIL [Concomitant]
     Dosage: 10 MG, 1X/DAY
  6. CARVEDILOL [Concomitant]
     Dosage: 18.75 MG, 2X/DAY
  7. BROMAZEPAM [Concomitant]
     Dosage: 1.5 MG, 1X/DAY

REACTIONS (3)
  - Drug interaction [Recovered/Resolved]
  - Drug-induced liver injury [Recovered/Resolved]
  - Systemic inflammatory response syndrome [Recovered/Resolved]
